FAERS Safety Report 12309970 (Version 2)
Quarter: 2016Q2

REPORT INFORMATION
  Report Type: Spontaneous
  Country: JP (occurrence: JP)
  Receive Date: 20160427
  Receipt Date: 20160629
  Transmission Date: 20160815
  Serious: Yes (Other)
  Sender: FDA-Public Use
  Company Number: JP-SUN PHARMACEUTICAL INDUSTRIES LTD-2016R1-115574

PATIENT
  Age: 74 Year
  Sex: Male

DRUGS (7)
  1. FOLINIC ACID [Concomitant]
     Active Substance: LEUCOVORIN
     Indication: RECTAL CANCER
     Dosage: SECOND COURSE; DAY 1 AND 8
     Route: 065
  2. FLUOROURACIL. [Concomitant]
     Active Substance: FLUOROURACIL
     Indication: RECTAL CANCER
     Dosage: SECOND COURSE; DAY 1 AND 8
     Route: 065
  3. CETUXIMAB [Suspect]
     Active Substance: CETUXIMAB
     Indication: RECTAL CANCER
     Dosage: SECOND COURSE; DAY 1 AND 8
     Route: 065
  4. FLUOROURACIL. [Concomitant]
     Active Substance: FLUOROURACIL
     Dosage: FIRST COURSE
     Route: 065
     Dates: start: 20130724
  5. IRINOTECAN [Suspect]
     Active Substance: IRINOTECAN
     Indication: RECTAL CANCER
     Dosage: SECOND COURSE; DAY 1
     Route: 065
  6. IRINOTECAN [Suspect]
     Active Substance: IRINOTECAN
     Dosage: FIRST COURSE; DAY 1
     Route: 065
     Dates: start: 20130724
  7. FOLINIC ACID [Concomitant]
     Active Substance: LEUCOVORIN
     Dosage: FIRST COURSE
     Route: 065
     Dates: start: 20130724

REACTIONS (2)
  - Interstitial lung disease [Recovering/Resolving]
  - Neutropenia [Unknown]
